APPROVED DRUG PRODUCT: LYPQOZET
Active Ingredient: ATORVASTATIN CALCIUM; EZETIMIBE
Strength: EQ 40MG BASE;10MG
Dosage Form/Route: TABLET;ORAL
Application: A206084 | Product #003
Applicant: PHARMOBEDIENT CONSULTING LLC
Approved: Apr 26, 2017 | RLD: No | RS: No | Type: RX